FAERS Safety Report 5233041-5 (Version None)
Quarter: 2007Q1

REPORT INFORMATION
  Report Type: 
  Country: None (occurrence: None)
  Receive Date: 20070207
  Receipt Date: 20070131
  Transmission Date: 20070707
  Serious: Yes (Other)
  Sender: FDA-Public Use
  Company Number: US-ROXANE LABORATORIES, INC-2007-BP-01689RO

PATIENT
  Age: 33 Week
  Sex: Female
  Weight: 2.5 kg

DRUGS (6)
  1. ZIDOVUDINE TABLETS USP, 300 MG [Suspect]
     Indication: HIV INFECTION
     Dosage: 600 MG DAILY (IN UTERO)
     Route: 064
     Dates: start: 20060605
  2. RETROVIR [Suspect]
     Indication: HIV INFECTION
     Dosage: 2 MG/KG/HR (IN UTERO)
     Route: 064
     Dates: start: 20061024, end: 20061024
  3. RETROVIR [Suspect]
     Dosage: 1 MG/KG/HR
     Route: 042
     Dates: start: 20061024, end: 20061024
  4. KALETRA [Suspect]
     Indication: HIV INFECTION
     Dosage: 10 ML PER DAY (IN UTERO)
     Route: 064
     Dates: start: 20060627
  5. EPIVIR [Suspect]
     Indication: HIV INFECTION
     Dosage: 300 MG DAILY (IN UTERO)
     Route: 064
     Dates: start: 20060605
  6. VIRACEPT [Suspect]
     Indication: HIV INFECTION
     Dosage: 2500 MG DAILY (IN UTERO)
     Route: 064
     Dates: start: 20060605, end: 20060627

REACTIONS (1)
  - PREMATURE BABY [None]
